FAERS Safety Report 4715215-2 (Version None)
Quarter: 2005Q2

REPORT INFORMATION
  Report Type: 
  Country: None (occurrence: None)
  Receive Date: 20050630
  Receipt Date: 20050405
  Transmission Date: 20051028
  Serious: No
  Sender: FDA-Public Use
  Company Number: 211052

PATIENT
  Sex: Male

DRUGS (1)
  1. AVASTIN [Suspect]
     Dosage: UNK, UNK, INTRAVENOUS
     Route: 042

REACTIONS (3)
  - BLOOD PRESSURE DECREASED [None]
  - CHEST PAIN [None]
  - HEART RATE DECREASED [None]
